FAERS Safety Report 6916716-9 (Version None)
Quarter: 2010Q3

REPORT INFORMATION
  Report Type: 
  Country: None (occurrence: None)
  Receive Date: 20100809
  Receipt Date: 20100809
  Transmission Date: 20110219
  Serious: Yes (Hospitalization)
  Sender: FDA-Public Use
  Company Number: None

PATIENT
  Sex: Female
  Weight: 86.8 kg

DRUGS (1)
  1. TAXOL [Suspect]
     Dosage: 258 MG
     Dates: end: 20100712

REACTIONS (1)
  - SMALL INTESTINAL OBSTRUCTION [None]
